FAERS Safety Report 7205253-2 (Version None)
Quarter: 2010Q4

REPORT INFORMATION
  Report Type: 
  Country: None (occurrence: None)
  Receive Date: 20101231
  Receipt Date: 20101221
  Transmission Date: 20110411
  Serious: No
  Sender: FDA-Public Use
  Company Number: US-BIOGENIDEC-2010BI045044

PATIENT
  Age: 52 Year
  Sex: Female

DRUGS (2)
  1. TYSABRI [Suspect]
     Indication: MULTIPLE SCLEROSIS
     Route: 042
     Dates: start: 20100319
  2. AMPYRA [Concomitant]
     Dates: start: 20100601, end: 20101101

REACTIONS (6)
  - BACK PAIN [None]
  - CLONUS [None]
  - FATIGUE [None]
  - LHERMITTE'S SIGN [None]
  - MOBILITY DECREASED [None]
  - NAUSEA [None]
